FAERS Safety Report 26207781 (Version 1)
Quarter: 2025Q4

REPORT INFORMATION
  Report Type: Spontaneous
  Country: US (occurrence: US)
  Receive Date: 20251229
  Receipt Date: 20251229
  Transmission Date: 20260118
  Serious: Yes (Hospitalization, Other)
  Sender: CIPLA
  Company Number: US-MLMSERVICE-20251210-PI745183-00272-1

PATIENT

DRUGS (1)
  1. MEDROXYPROGESTERONE ACETATE [Suspect]
     Active Substance: MEDROXYPROGESTERONE ACETATE
     Indication: Endometriosis
     Dosage: UNK
     Route: 065

REACTIONS (1)
  - Porphyria acute [Recovering/Resolving]
